FAERS Safety Report 9513242 (Version 1)
Quarter: 2013Q3

REPORT INFORMATION
  Report Type: Spontaneous
  Country: ES (occurrence: ES)
  Receive Date: 20130910
  Receipt Date: 20130910
  Transmission Date: 20140515
  Serious: Yes (Other)
  Sender: FDA-Public Use
  Company Number: CHPA2013ES013937

PATIENT
  Age: 37 Year
  Sex: Female

DRUGS (7)
  1. PARACETAMOL [Suspect]
     Indication: SUICIDE ATTEMPT
     Dosage: UNK, UNK
     Route: 048
     Dates: start: 20130106, end: 20130106
  2. IDALPREM [Suspect]
     Indication: SUICIDE ATTEMPT
     Dosage: UNK, UNK
     Route: 048
     Dates: start: 20130106, end: 20130106
  3. OMEPRAZOL//OMEPRAZOLE [Concomitant]
     Indication: PROPHYLAXIS AGAINST GASTROINTESTINAL ULCER
     Dosage: 20 MG, QD
     Dates: start: 2011, end: 20130106
  4. FLUOXETINA [Concomitant]
     Indication: PERSONALITY DISORDER
     Dosage: 20 MG, BID
     Dates: start: 201201, end: 20130106
  5. ADALAT [Concomitant]
     Indication: HYPERTENSION
     Dosage: 30 MG, QD
     Dates: start: 2005
  6. TOPAMAX [Concomitant]
     Indication: PERSONALITY DISORDER
     Dosage: 100 MG, TID
     Dates: start: 201201, end: 20130106
  7. IDALPREM [Concomitant]
     Indication: ANXIETY DISORDER
     Dosage: 5 MG, TID
     Dates: end: 20130106

REACTIONS (1)
  - Hepatitis [Recovered/Resolved]
